FAERS Safety Report 10672739 (Version 1)
Quarter: 2014Q4

REPORT INFORMATION
  Report Type: Other
  Country: JP (occurrence: JP)
  Receive Date: 20141223
  Receipt Date: 20141223
  Transmission Date: 20150529
  Serious: Yes (Hospitalization)
  Sender: FDA-Public Use
  Company Number: JP-BAUSCH-BL-2014-010621

PATIENT
  Age: 43 Year
  Sex: Female

DRUGS (5)
  1. NICORANDIL [Suspect]
     Active Substance: NICORANDIL
     Indication: PRINZMETAL ANGINA
  2. DILTIAZEM [Suspect]
     Active Substance: DILTIAZEM
     Indication: PRINZMETAL ANGINA
  3. NICORANDIL [Suspect]
     Active Substance: NICORANDIL
     Dosage: 2 MG/H
     Route: 041
  4. NIFEDIPINE. [Suspect]
     Active Substance: NIFEDIPINE
     Indication: PRINZMETAL ANGINA
  5. ISOSORBIDE DINITRATE. [Suspect]
     Active Substance: ISOSORBIDE DINITRATE
     Indication: PRINZMETAL ANGINA

REACTIONS (2)
  - Asthma [Recovered/Resolved]
  - Prinzmetal angina [Recovered/Resolved]
